FAERS Safety Report 23376812 (Version 1)
Quarter: 2024Q1

REPORT INFORMATION
  Report Type: Spontaneous
  Country: GB (occurrence: RO)
  Receive Date: 20240108
  Receipt Date: 20240108
  Transmission Date: 20240410
  Serious: Yes (Other)
  Sender: FDA-Public Use
  Company Number: GB-ENDO PHARMACEUTICALS INC-2023-006331

PATIENT
  Sex: Female

DRUGS (1)
  1. AMPICILLIN TRIHYDRATE [Suspect]
     Active Substance: AMPICILLIN TRIHYDRATE
     Indication: Product used for unknown indication
     Dosage: UNK UNKNOWN, UNKNOWN (TOOK OVER 30 YEARS AGO)
     Route: 048

REACTIONS (1)
  - SJS-TEN overlap [Recovered/Resolved]
